FAERS Safety Report 6178065-9 (Version None)
Quarter: 2009Q2

REPORT INFORMATION
  Report Type: 
  Country: None (occurrence: None)
  Receive Date: 20090504
  Receipt Date: 20090429
  Transmission Date: 20091009
  Serious: Yes (Hospitalization)
  Sender: FDA-Public Use
  Company Number: US-WYE-H09157209

PATIENT

DRUGS (1)
  1. ADVIL [Suspect]
     Indication: SUICIDE ATTEMPT
     Dosage: 40 CAPSULES X 1
     Route: 048

REACTIONS (4)
  - CEREBROVASCULAR ACCIDENT [None]
  - INTENTIONAL OVERDOSE [None]
  - MYOCARDIAL INFARCTION [None]
  - SUICIDE ATTEMPT [None]
